FAERS Safety Report 21752528 (Version 5)
Quarter: 2025Q1

REPORT INFORMATION
  Report Type: Spontaneous
  Country: DE (occurrence: DE)
  Receive Date: 20221220
  Receipt Date: 20250203
  Transmission Date: 20250409
  Serious: Yes (Hospitalization, Disabling, Other)
  Sender: ALKEM
  Company Number: DE-ALKEM LABORATORIES LIMITED-DE-ALKEM-2022-10781

PATIENT
  Age: 80 Year
  Sex: Female

DRUGS (6)
  1. MYCOPHENOLATE MOFETIL [Suspect]
     Active Substance: MYCOPHENOLATE MOFETIL
     Indication: Ocular pemphigoid
     Dosage: 1500 MILLIGRAM, QD (EVERY ONE DAY)
     Route: 065
  2. MYCOPHENOLATE MOFETIL [Suspect]
     Active Substance: MYCOPHENOLATE MOFETIL
     Dosage: 1000 MILLIGRAM, QD (DAILY)
     Route: 065
  3. CYCLOSPORINE [Suspect]
     Active Substance: CYCLOSPORINE
     Indication: Ocular pemphigoid
     Route: 065
  4. PREDNISOLONE [Suspect]
     Active Substance: PREDNISOLONE
     Indication: Ocular pemphigoid
     Route: 065
  5. PREDNISOLONE [Suspect]
     Active Substance: PREDNISOLONE
     Dosage: 5 MILLIGRAM, QD (EVERY ONE DAY, MAINTAINENCE DOSE)
     Route: 065
  6. UNSPECIFIED INGREDIENT [Concomitant]
     Active Substance: UNSPECIFIED INGREDIENT
     Indication: Product used for unknown indication
     Route: 065

REACTIONS (6)
  - Ocular pemphigoid [Unknown]
  - Limbal stem cell deficiency [Not Recovered/Not Resolved]
  - Ophthalmic herpes zoster [Recovered/Resolved with Sequelae]
  - COVID-19 [Recovered/Resolved]
  - Off label use [Unknown]
  - Disease recurrence [Unknown]
